FAERS Safety Report 8585717-X (Version None)
Quarter: 2012Q3

REPORT INFORMATION
  Report Type: 
  Country: None (occurrence: None)
  Receive Date: 20120810
  Receipt Date: 20120807
  Transmission Date: 20120928
  Serious: No
  Sender: FDA-Public Use
  Company Number: US-PFIZER INC-2012193456

PATIENT
  Age: 39 Year
  Sex: Female
  Weight: 88 kg

DRUGS (5)
  1. PROZAC [Concomitant]
     Dosage: UNK
  2. PROTONIX [Suspect]
     Indication: DYSPEPSIA
     Dosage: 40 MG,DAILY
     Dates: start: 20120201, end: 20120701
  3. PROTONIX [Suspect]
     Indication: GASTROOESOPHAGEAL REFLUX DISEASE
  4. ASPIRIN [Concomitant]
     Dosage: UNK
  5. CINNAMON [Concomitant]
     Dosage: UNK

REACTIONS (1)
  - DRUG INEFFECTIVE [None]
